FAERS Safety Report 5721461-1 (Version None)
Quarter: 2008Q2

REPORT INFORMATION
  Report Type: 
  Country: None (occurrence: None)
  Receive Date: 20080428
  Receipt Date: 20080428
  Transmission Date: 20081010
  Serious: Yes (Life-Threatening)
  Sender: FDA-Public Use
  Company Number: None

PATIENT
  Age: 67 Year
  Sex: Female
  Weight: 104.7809 kg

DRUGS (1)
  1. OCTAGAM [Suspect]
     Indication: HYPOGAMMAGLOBULINAEMIA
     Dosage: 36 GM  IV DRIP
     Route: 041
     Dates: start: 20080415, end: 20080415

REACTIONS (2)
  - INFUSION RELATED REACTION [None]
  - MYOCARDIAL INFARCTION [None]
